FAERS Safety Report 19250343 (Version 1)
Quarter: 2021Q2

REPORT INFORMATION
  Report Type: Spontaneous
  Country: US (occurrence: US)
  Receive Date: 20210512
  Receipt Date: 20210512
  Transmission Date: 20210717
  Serious: No
  Sender: FDA-Public Use
  Company Number: US-ABBVIE-21K-163-3876299-00

PATIENT
  Sex: Female

DRUGS (3)
  1. GENGRAF [Suspect]
     Active Substance: CYCLOSPORINE
     Indication: PSORIASIS
     Route: 048
  2. HUMIRA [Suspect]
     Active Substance: ADALIMUMAB
     Indication: PRODUCT USED FOR UNKNOWN INDICATION
     Route: 058
  3. VECTICAL [Concomitant]
     Active Substance: CALCITRIOL
     Indication: PSORIASIS

REACTIONS (2)
  - Inflammation [Unknown]
  - Pruritus [Unknown]
